FAERS Safety Report 12410400 (Version 2)
Quarter: 2016Q3

REPORT INFORMATION
  Report Type: Report from Study
  Country: US (occurrence: US)
  Receive Date: 20160527
  Receipt Date: 20160713
  Transmission Date: 20161109
  Serious: No
  Sender: FDA-Public Use
  Company Number: US-ASTRAZENECA-2016SE54061

PATIENT
  Age: 21036 Day
  Sex: Female

DRUGS (1)
  1. NEXIUM [Suspect]
     Active Substance: ESOMEPRAZOLE MAGNESIUM
     Dosage: 40 MG, DOSING UNKNOWN
     Route: 048
     Dates: start: 2005

REACTIONS (7)
  - Sinus perforation [Unknown]
  - Facial bones fracture [Unknown]
  - Fungal infection [Unknown]
  - Tooth loss [Unknown]
  - Limb injury [Unknown]
  - Ligament rupture [Unknown]
  - Hand fracture [Unknown]

NARRATIVE: CASE EVENT DATE: 20131103
